FAERS Safety Report 14242081 (Version 1)
Quarter: 2017Q4

REPORT INFORMATION
  Report Type: Spontaneous
  Country: FR (occurrence: FR)
  Receive Date: 20171201
  Receipt Date: 20171201
  Transmission Date: 20180321
  Serious: Yes (Other)
  Sender: FDA-Public Use
  Company Number: FR-TEVA-2017-FR-827601

PATIENT
  Sex: Female

DRUGS (1)
  1. LETROZOLE. [Suspect]
     Active Substance: LETROZOLE

REACTIONS (5)
  - Osteoporosis [Unknown]
  - Hypogammaglobulinaemia [Unknown]
  - Depressed mood [Unknown]
  - Tendonitis [Unknown]
  - Fatigue [Unknown]
